FAERS Safety Report 9619765 (Version 2)
Quarter: 2013Q4

REPORT INFORMATION
  Report Type: Spontaneous
  Country: FI (occurrence: FI)
  Receive Date: 20131014
  Receipt Date: 20131014
  Transmission Date: 20140711
  Serious: Yes (Other)
  Sender: FDA-Public Use
  Company Number: FI-TEVA-2010R0503588

PATIENT
  Sex: Male

DRUGS (15)
  1. AMOXIN [Suspect]
     Indication: SINUSITIS
     Route: 048
     Dates: start: 20071105, end: 20071109
  2. AMOXIN [Interacting]
     Indication: INFLUENZA
  3. CHAMPIX [Interacting]
     Indication: NICOTINE DEPENDENCE
     Dosage: .5 MILLIGRAM DAILY;
     Route: 048
     Dates: start: 20070702, end: 20070704
  4. CHAMPIX [Interacting]
     Dosage: 1 MILLIGRAM DAILY;
     Route: 048
     Dates: start: 20070705, end: 20070708
  5. CHAMPIX [Interacting]
     Dosage: 2 MILLIGRAM DAILY;
     Route: 048
     Dates: start: 20070709, end: 200711
  6. NICORETTE GUM [Suspect]
     Indication: SMOKING CESSATION THERAPY
     Dosage: 2 MILLIGRAM DAILY;
     Route: 048
     Dates: start: 2006, end: 2007
  7. RINEXIN [Interacting]
     Dosage: 50 MILLIGRAM DAILY;
     Route: 048
     Dates: start: 20071105, end: 200711
  8. NICORETTE PATCH [Suspect]
     Route: 062
     Dates: start: 2006
  9. SERTRALIN ORION [Suspect]
     Dosage: 25 MILLIGRAM DAILY;
     Route: 048
     Dates: start: 200903
  10. CIPRALEX [Suspect]
     Dates: start: 20071218
  11. AZITHROMYCIN [Concomitant]
     Dates: start: 20071024, end: 200710
  12. DOXIMYCIN [Concomitant]
     Dates: start: 200710, end: 2007
  13. KLACID [Concomitant]
     Dates: start: 20071111, end: 200711
  14. HAVRIX [Concomitant]
     Dates: start: 20070629, end: 20070629
  15. TOCLASE [Concomitant]
     Dates: start: 20071001

REACTIONS (48)
  - Tinnitus [Not Recovered/Not Resolved]
  - Drug interaction [Unknown]
  - Vasodilatation [Recovered/Resolved]
  - Blood glucose increased [Unknown]
  - Swelling [Not Recovered/Not Resolved]
  - Acute sinusitis [Unknown]
  - Blood cholesterol increased [Unknown]
  - Dyspnoea [Recovered/Resolved]
  - Depression [Not Recovered/Not Resolved]
  - Erythema [Unknown]
  - Confusional state [Unknown]
  - Musculoskeletal discomfort [Unknown]
  - Dizziness [Unknown]
  - Palpitations [Recovered/Resolved]
  - Aggression [Recovered/Resolved]
  - Hallucination [Recovered/Resolved]
  - Anxiety [Recovering/Resolving]
  - Restlessness [Recovered/Resolved]
  - Panic reaction [Unknown]
  - Vertigo [Unknown]
  - Weight increased [Not Recovered/Not Resolved]
  - Sleep disorder [Not Recovered/Not Resolved]
  - Activities of daily living impaired [Unknown]
  - Withdrawal syndrome [Recovered/Resolved]
  - Mood swings [Unknown]
  - Hyposmia [Unknown]
  - Hepatic steatosis [Unknown]
  - Lower respiratory tract infection [Unknown]
  - Hypersensitivity [Unknown]
  - Hypothyroidism [Unknown]
  - Adjustment disorder with mixed anxiety and depressed mood [Unknown]
  - Memory impairment [Unknown]
  - Irritability [Recovered/Resolved]
  - Nightmare [Unknown]
  - Increased appetite [Unknown]
  - Medication error [Unknown]
  - Infection [Recovered/Resolved]
  - Sense of oppression [Unknown]
  - Fatigue [Unknown]
  - Euphoric mood [Recovered/Resolved]
  - Overweight [Unknown]
  - Influenza [Unknown]
  - Upper respiratory tract infection [Unknown]
  - Abdominal discomfort [Unknown]
  - Nausea [Unknown]
  - Fear [Unknown]
  - Feeling abnormal [Unknown]
  - Personality change [Unknown]
